FAERS Safety Report 15017449 (Version 1)
Quarter: 2018Q2

REPORT INFORMATION
  Report Type: Spontaneous
  Country: US (occurrence: US)
  Receive Date: 20180615
  Receipt Date: 20180615
  Transmission Date: 20180711
  Serious: Yes (Other)
  Sender: FDA-Public Use
  Company Number: US-BAYER-2018-109290

PATIENT
  Sex: Female
  Weight: 80 kg

DRUGS (6)
  1. METOPROLOL. [Concomitant]
     Active Substance: METOPROLOL
     Dosage: UNK
  2. BAYER LOW DOSE [Suspect]
     Active Substance: ASPIRIN
     Indication: COAGULOPATHY
     Dosage: 2 DF, QD
     Route: 048
     Dates: start: 2015
  3. METHIMAZOLE. [Concomitant]
     Active Substance: METHIMAZOLE
     Dosage: UNK
  4. APIXABAN [Concomitant]
     Active Substance: APIXABAN
     Dosage: UNK
  5. MULTIVITAMIN [Concomitant]
     Active Substance: VITAMINS
     Dosage: UNK
  6. MULTAQ [Concomitant]
     Active Substance: DRONEDARONE
     Dosage: UNK

REACTIONS (4)
  - Cerebrovascular accident [Unknown]
  - Visual field defect [Unknown]
  - Product use issue [Unknown]
  - Thyrotoxic crisis [None]

NARRATIVE: CASE EVENT DATE: 2015
